FAERS Safety Report 21546243 (Version 1)
Quarter: 2022Q4

REPORT INFORMATION
  Report Type: Report from Study
  Country: US (occurrence: US)
  Receive Date: 20221103
  Receipt Date: 20221103
  Transmission Date: 20230113
  Serious: Yes (Hospitalization)
  Sender: FDA-Public Use
  Company Number: US-ABBVIE-22K-163-4478507-00

PATIENT
  Age: 41 Year
  Sex: Female

DRUGS (2)
  1. RINVOQ [Suspect]
     Active Substance: UPADACITINIB
     Indication: Rheumatoid arthritis
     Dosage: ONCE A DAY?15 MG?LAST ADMINISTRATION DATE 2022
     Route: 048
     Dates: start: 20220629
  2. RINVOQ [Suspect]
     Active Substance: UPADACITINIB
     Indication: Rheumatoid arthritis
     Dosage: ONCE A DAY?15 MG?FIRST ADMINISTRATION DATE 2022
     Route: 048
     Dates: end: 20220901

REACTIONS (7)
  - Transfusion [Unknown]
  - Burning sensation [Unknown]
  - Hyperhidrosis [Unknown]
  - Menstruation delayed [Unknown]
  - Oligomenorrhoea [Recovered/Resolved]
  - Joint range of motion decreased [Unknown]
  - Rheumatoid arthritis [Not Recovered/Not Resolved]

NARRATIVE: CASE EVENT DATE: 20220808
